FAERS Safety Report 18126767 (Version 1)
Quarter: 2020Q3

REPORT INFORMATION
  Report Type: Spontaneous
  Country: CN (occurrence: CN)
  Receive Date: 20200809
  Receipt Date: 20200809
  Transmission Date: 20201103
  Serious: Yes (Other)
  Sender: FDA-Public Use
  Company Number: CN-BAXTER-2020BAX016082

PATIENT
  Age: 40 Year
  Sex: Female
  Weight: 83 kg

DRUGS (6)
  1. 0.9% SODIUM CHLORIDE INJECTION [Suspect]
     Active Substance: SODIUM CHLORIDE
     Indication: MEDICATION DILUTION
     Dosage: ENDOXAN + 0.9% SODIUM CHLORIDE
     Route: 041
     Dates: start: 20200716, end: 20200717
  2. 0.9% SODIUM CHLORIDE INJECTION [Suspect]
     Active Substance: SODIUM CHLORIDE
     Dosage: PACLITAXEL (ALBUMIN?BOUND) + 0.9% SODIUM CHLORIDE
     Route: 041
     Dates: start: 20200717, end: 20200718
  3. ENDOXAN [Suspect]
     Active Substance: CYCLOPHOSPHAMIDE
     Indication: INVASIVE DUCTAL BREAST CARCINOMA
     Dosage: ENDOXAN + 0.9% SODIUM CHLORIDE
     Route: 041
     Dates: start: 20200716, end: 20200717
  4. AIDASHENG [Suspect]
     Active Substance: EPIRUBICIN HYDROCHLORIDE
     Indication: INVASIVE DUCTAL BREAST CARCINOMA
     Dosage: AIDASHENG + 0.9% SODIUM CHLORIDE
     Route: 041
     Dates: start: 20200716, end: 20200717
  5. PACLITAXEL (ALBUMIN?BOUND) [Suspect]
     Active Substance: PACLITAXEL
     Indication: INVASIVE DUCTAL BREAST CARCINOMA
     Dosage: PACLITAXEL (ALBUMIN?BOUND) + 0.9% SODIUM CHLORIDE
     Route: 041
     Dates: start: 20200717, end: 20200718
  6. 0.9% SODIUM CHLORIDE INJECTION [Suspect]
     Active Substance: SODIUM CHLORIDE
     Dosage: AIDASHENG + 0.9% SODIUM CHLORIDE
     Route: 041
     Dates: start: 20200716, end: 20200717

REACTIONS (1)
  - Myelosuppression [Recovering/Resolving]

NARRATIVE: CASE EVENT DATE: 20200720
